FAERS Safety Report 14208150 (Version 1)
Quarter: 2017Q4

REPORT INFORMATION
  Report Type: Spontaneous
  Country: US (occurrence: US)
  Receive Date: 20171121
  Receipt Date: 20171121
  Transmission Date: 20180321
  Serious: Yes (Other)
  Sender: FDA-Public Use
  Company Number: US-JNJFOC-20171112473

PATIENT
  Age: 24 Year
  Sex: Female
  Weight: 72.58 kg

DRUGS (1)
  1. LISTERINE TOTAL CARE STAIN REMOVER ANTI CAVITY FRESHMINT [Suspect]
     Active Substance: SODIUM FLUORIDE
     Indication: DENTAL DISORDER PROPHYLAXIS
     Route: 048
     Dates: start: 20171102, end: 20171103

REACTIONS (2)
  - Chemical burn of gastrointestinal tract [Not Recovered/Not Resolved]
  - Wrong technique in product usage process [Unknown]

NARRATIVE: CASE EVENT DATE: 20171102
